FAERS Safety Report 8227401-8 (Version None)
Quarter: 2012Q1

REPORT INFORMATION
  Report Type: 
  Country: None (occurrence: None)
  Receive Date: 20120322
  Receipt Date: 20120312
  Transmission Date: 20120608
  Serious: Yes (Other)
  Sender: FDA-Public Use
  Company Number: DE-AMGEN-DEUSP2012016866

PATIENT
  Age: 57 Year
  Sex: Male

DRUGS (10)
  1. ENBREL [Suspect]
     Indication: PSORIASIS
     Dosage: 50 MG, WEEKLY
     Route: 058
     Dates: start: 20081111
  2. LEVOTHYROXINE SODIUM [Concomitant]
     Dosage: 200 UNK, UNK
  3. CLOPIDOGREL BISULFATE [Concomitant]
     Dosage: 75 UNK, UNK
  4. ATACAND [Concomitant]
     Dosage: UNK
  5. ISONIAZID [Concomitant]
     Indication: TUBERCULOSIS
     Dosage: 300 MG DAILY
  6. POLAMIDON [Concomitant]
     Dosage: UNK
  7. SIMVASTATIN [Concomitant]
     Dosage: 20 MG, UNK
  8. LEVOMETHADONE [Concomitant]
     Dosage: UNK
  9. MAGNESIUM VERLA N                  /01455601/ [Concomitant]
     Dosage: UNK
  10. CLOPIDOGREL [Concomitant]
     Dosage: 75 MG, UNK

REACTIONS (3)
  - OSTEOPOROSIS [None]
  - VITAMIN D DECREASED [None]
  - SPINAL FRACTURE [None]
